FAERS Safety Report 9792546 (Version 1)
Quarter: 2013Q4

REPORT INFORMATION
  Report Type: Spontaneous
  Country: US (occurrence: None)
  Receive Date: 20131231
  Receipt Date: 20131231
  Transmission Date: 20140711
  Serious: Yes (Disabling)
  Sender: FDA-Public Use
  Company Number: None

PATIENT
  Sex: Male
  Weight: 95.26 kg

DRUGS (6)
  1. XARELTO(RIVAROXABAN) [Suspect]
     Indication: ATRIAL FIBRILLATION
     Dosage: WITH EVENING MEAL
     Route: 048
     Dates: start: 20111220, end: 20130508
  2. SYNTHROID [Concomitant]
  3. DILTIAZEM [Concomitant]
  4. MAGNESIUM [Concomitant]
  5. CENTRUM SILVER MULTI-VITAMIN MINERAL [Concomitant]
  6. GLUCOSAMINE/CHONDROITIN/MSM [Concomitant]

REACTIONS (3)
  - Spontaneous haematoma [None]
  - Local swelling [None]
  - Skin discolouration [None]
